FAERS Safety Report 20225257 (Version 2)
Quarter: 2022Q1

REPORT INFORMATION
  Report Type: Spontaneous
  Country: FR (occurrence: FR)
  Receive Date: 20211223
  Receipt Date: 20220121
  Transmission Date: 20220423
  Serious: Yes (Life-Threatening, Other)
  Sender: FDA-Public Use
  Company Number: FR-BAXTER-2021BAX041641

PATIENT
  Age: 59 Year
  Sex: Male

DRUGS (3)
  1. CALCIUM CL\MAGNESIUM CL\POTASSIUM CL\SODIUM BICAR\SODIUM CL\SODIUM PHO [Suspect]
     Active Substance: CALCIUM CL\MAGNESIUM CL\POTASSIUM CL\SODIUM BICAR\SODIUM CL\SODIUM PHOSPHATE,DIB
     Indication: Haemofiltration
     Dosage: 5L BAGS
     Route: 065
     Dates: start: 20210803, end: 20210806
  2. POTASSIUM [Suspect]
     Active Substance: POTASSIUM
     Indication: Hypokalaemia
     Dosage: REFILL IN SYRINGE PUMP ON CENTRAL LINE?INFUSION RATE: 10 MILLILITERS PER HOUR VIA SYRINGE PUMP?8 GRA
     Route: 042
     Dates: start: 20210806
  3. CITRATE [Suspect]
     Active Substance: CITRIC ACID MONOHYDRATE
     Indication: Haemofiltration
     Route: 065
     Dates: start: 20210803, end: 20210806

REACTIONS (3)
  - Hypokalaemia [Unknown]
  - Cardiac arrest [Recovered/Resolved]
  - Hyperkalaemia [Recovered/Resolved]

NARRATIVE: CASE EVENT DATE: 20210803
